FAERS Safety Report 23262364 (Version 1)
Quarter: 2023Q4

REPORT INFORMATION
  Report Type: Report from Study
  Country: ES (occurrence: ES)
  Receive Date: 20231205
  Receipt Date: 20231205
  Transmission Date: 20240109
  Serious: Yes (Hospitalization, Other)
  Sender: FDA-Public Use
  Company Number: None

PATIENT
  Age: 60 Year
  Sex: Female

DRUGS (2)
  1. VALIUM [Suspect]
     Active Substance: DIAZEPAM
     Indication: Product used for unknown indication
     Dosage: VALIUM 10 MG COMPRIMIDOS, 25 COMPRIMIDOS (VALIUM 10 MG TABLETS, 25 PILLS)
     Dates: start: 20210706, end: 20211020
  2. LORAZEPAM [Suspect]
     Active Substance: LORAZEPAM
     Indication: Product used for unknown indication
     Dosage: LORAZEPAM 1 MG 25 TABLETS
     Dates: start: 2018, end: 20211020

REACTIONS (4)
  - Gait disturbance [Recovering/Resolving]
  - Slow speech [Recovering/Resolving]
  - Bradyphrenia [Recovering/Resolving]
  - Dysarthria [Recovering/Resolving]

NARRATIVE: CASE EVENT DATE: 20211020
